FAERS Safety Report 14009770 (Version 1)
Quarter: 2017Q3

REPORT INFORMATION
  Report Type: Spontaneous
  Country: CH (occurrence: CH)
  Receive Date: 20170925
  Receipt Date: 20170925
  Transmission Date: 20171128
  Serious: Yes (Other)
  Sender: FDA-Public Use
  Company Number: PHHY2017CH133296

PATIENT
  Sex: Female

DRUGS (2)
  1. COSENTYX [Suspect]
     Active Substance: SECUKINUMAB
     Indication: ANKYLOSING SPONDYLITIS
     Dosage: 150 MG, QW
     Route: 058
     Dates: start: 20170601, end: 20170628
  2. COSENTYX [Suspect]
     Active Substance: SECUKINUMAB
     Indication: AXIAL SPONDYLOARTHRITIS
     Dosage: 150 MG, UNK
     Route: 058
     Dates: start: 20170728

REACTIONS (5)
  - Product use in unapproved indication [Unknown]
  - Scar [Unknown]
  - Eczema [Recovering/Resolving]
  - Urticaria [Recovering/Resolving]
  - Alopecia [Recovering/Resolving]

NARRATIVE: CASE EVENT DATE: 20170601
